FAERS Safety Report 16783319 (Version 2)
Quarter: 2019Q3

REPORT INFORMATION
  Report Type: Report from Study
  Country: None (occurrence: US)
  Receive Date: 20190907
  Receipt Date: 20190911
  Transmission Date: 20191005
  Serious: Yes (Hospitalization)
  Sender: FDA-Public Use
  Company Number: US-ABBVIE-19K-163-2914708-00

PATIENT
  Age: 24 Year
  Sex: Female

DRUGS (2)
  1. HUMIRA [Suspect]
     Active Substance: ADALIMUMAB
     Indication: PSORIATIC ARTHROPATHY
     Route: 058
     Dates: start: 20190131
  2. HUMIRA [Suspect]
     Active Substance: ADALIMUMAB
     Indication: RHEUMATOID ARTHRITIS

REACTIONS (10)
  - Nervous system disorder [Unknown]
  - Seizure [Recovered/Resolved]
  - Nasal congestion [Unknown]
  - Cardiac disorder [Recovering/Resolving]
  - Anxiety [Unknown]
  - Ventricular extrasystoles [Unknown]
  - Ear infection [Recovered/Resolved]
  - Cough [Recovered/Resolved]
  - Respiratory tract congestion [Unknown]
  - Adverse event [Unknown]

NARRATIVE: CASE EVENT DATE: 2019
